FAERS Safety Report 8822591 (Version 1)
Quarter: 2012Q4

REPORT INFORMATION
  Report Type: 
  Country: US (occurrence: US)
  Receive Date: 20121003
  Receipt Date: 20121003
  Transmission Date: 20130627
  Serious: No
  Sender: FDA-Public Use
  Company Number: US-ASTRAZENECA-2012SE64703

PATIENT
  Sex: Female
  Weight: 59 kg

DRUGS (4)
  1. CRESTOR [Suspect]
     Indication: MYALGIA
     Route: 048
  2. LIPITOR [Suspect]
     Route: 065
  3. NIASPAN [Suspect]
     Indication: LIPOPROTEIN (A) INCREASED
     Route: 065
     Dates: start: 2008
  4. SIMCOR [Suspect]
     Indication: LIPOPROTEIN (A) INCREASED
     Route: 065
     Dates: start: 2008

REACTIONS (1)
  - Fatigue [Unknown]
